FAERS Safety Report 6412985-2 (Version None)
Quarter: 2009Q4

REPORT INFORMATION
  Report Type: 
  Country: None (occurrence: None)
  Receive Date: 20091023
  Receipt Date: 20091016
  Transmission Date: 20100525
  Serious: Yes (Hospitalization)
  Sender: FDA-Public Use
  Company Number: PHHO2009DE10785

PATIENT
  Sex: Male
  Weight: 71 kg

DRUGS (2)
  1. RAD 666 RAD+TAB+PTR [Suspect]
     Indication: LUNG TRANSPLANT
     Dosage: 0.25 UNK, UNK
     Route: 048
     Dates: start: 20090320, end: 20090728
  2. MYCOPHENOLATE MOFETIL [Suspect]
     Indication: LUNG TRANSPLANT
     Dosage: UNK
     Route: 048
     Dates: start: 20090219

REACTIONS (14)
  - ASPIRATION PLEURAL CAVITY [None]
  - BACK PAIN [None]
  - BONE MARROW OEDEMA [None]
  - C-REACTIVE PROTEIN INCREASED [None]
  - CARDIAC FAILURE [None]
  - CARDIOMYOPATHY [None]
  - CHOLANGITIS [None]
  - DIARRHOEA [None]
  - ESCHERICHIA SEPSIS [None]
  - HYPOKALAEMIA [None]
  - INTERVERTEBRAL DISC PROTRUSION [None]
  - PLEURAL EFFUSION [None]
  - POLYURIA [None]
  - PYREXIA [None]
